FAERS Safety Report 13030487 (Version 1)
Quarter: 2016Q4

REPORT INFORMATION
  Report Type: Spontaneous
  Country: CN (occurrence: CN)
  Receive Date: 20161215
  Receipt Date: 20161215
  Transmission Date: 20170207
  Serious: Yes (Other)
  Sender: FDA-Public Use
  Company Number: CN-SA-2016SA223993

PATIENT
  Age: 37 Year
  Sex: Female
  Weight: 49 kg

DRUGS (1)
  1. PLAVIX [Suspect]
     Active Substance: CLOPIDOGREL BISULFATE
     Indication: CONNECTIVE TISSUE DISORDER
     Route: 048
     Dates: start: 20160308

REACTIONS (1)
  - Abortion [Unknown]

NARRATIVE: CASE EVENT DATE: 20160522
